FAERS Safety Report 7447022-4 (Version None)
Quarter: 2011Q2

REPORT INFORMATION
  Report Type: 
  Country: None (occurrence: None)
  Receive Date: 20110429
  Receipt Date: 20110425
  Transmission Date: 20111010
  Serious: Yes (Life-Threatening, Hospitalization, Other)
  Sender: FDA-Public Use
  Company Number: JP-CEPHALON-2011001434

PATIENT
  Sex: Male
  Weight: 87 kg

DRUGS (6)
  1. BENDAMUSTINE HCL [Suspect]
     Route: 042
     Dates: start: 20110323, end: 20110323
  2. BENDAMUSTINE HCL [Suspect]
     Indication: MANTLE CELL LYMPHOMA RECURRENT
     Route: 042
     Dates: start: 20110223, end: 20110224
  3. GRANISETRON HCL [Concomitant]
  4. RITUXIMAB [Concomitant]
     Indication: MANTLE CELL LYMPHOMA RECURRENT
     Dates: start: 20110222, end: 20110322
  5. DEXAMETHASONE SODIUM PHOSPHATE [Concomitant]
     Dates: start: 20110221, end: 20110222
  6. ALLOPURINOL [Concomitant]
     Dates: start: 20110220, end: 20110317

REACTIONS (4)
  - RASH [None]
  - KAPOSI'S VARICELLIFORM ERUPTION [None]
  - ANAPHYLACTIC SHOCK [None]
  - STEVENS-JOHNSON SYNDROME [None]
